FAERS Safety Report 12680349 (Version 1)
Quarter: 2016Q3

REPORT INFORMATION
  Report Type: Spontaneous
  Country: US (occurrence: US)
  Receive Date: 20160824
  Receipt Date: 20160824
  Transmission Date: 20161109
  Serious: No
  Sender: FDA-Public Use
  Company Number: US-GLAXOSMITHKLINE-US2016118835

PATIENT
  Age: 62 Year
  Sex: Female

DRUGS (1)
  1. ADVAIR DISKUS [Suspect]
     Active Substance: FLUTICASONE PROPIONATE\SALMETEROL XINAFOATE
     Indication: ASTHMA
     Dosage: 1 PUFF(S), BID
     Route: 048
     Dates: start: 20160809

REACTIONS (6)
  - Insomnia [Unknown]
  - Wrong technique in product usage process [Recovered/Resolved]
  - Accidental exposure to product [Recovered/Resolved]
  - Device use error [Recovered/Resolved]
  - Dyspepsia [Unknown]
  - Incorrect route of drug administration [Recovered/Resolved]

NARRATIVE: CASE EVENT DATE: 20160809
